FAERS Safety Report 17592051 (Version 1)
Quarter: 2020Q1

REPORT INFORMATION
  Report Type: Spontaneous
  Country: US (occurrence: US)
  Receive Date: 20200327
  Receipt Date: 20200327
  Transmission Date: 20200409
  Serious: Yes (Hospitalization, Other)
  Sender: FDA-Public Use
  Company Number: US-TORRENT-00010133

PATIENT
  Age: 70 Year
  Sex: Female

DRUGS (3)
  1. GABAPENTIN. [Concomitant]
     Active Substance: GABAPENTIN
     Indication: PRODUCT USED FOR UNKNOWN INDICATION
     Dosage: UNKNOWN
  2. HALDOL [Suspect]
     Active Substance: HALOPERIDOL
     Indication: SCHIZOAFFECTIVE DISORDER BIPOLAR TYPE
     Dosage: 1 MG AT NIGHT
  3. RISPERIDONE. [Suspect]
     Active Substance: RISPERIDONE
     Indication: SCHIZOAFFECTIVE DISORDER BIPOLAR TYPE
     Dosage: AT NIGHT

REACTIONS (7)
  - Hypersexuality [Recovering/Resolving]
  - Hypomania [Recovering/Resolving]
  - Irritability [Recovering/Resolving]
  - Paranoia [Recovering/Resolving]
  - Thinking abnormal [Recovering/Resolving]
  - Abnormal behaviour [Recovering/Resolving]
  - Withdrawal syndrome [Recovering/Resolving]
